FAERS Safety Report 13663808 (Version 1)
Quarter: 2017Q2

REPORT INFORMATION
  Report Type: Spontaneous
  Country: US (occurrence: US)
  Receive Date: 20170616
  Receipt Date: 20170616
  Transmission Date: 20170830
  Serious: No
  Sender: FDA-Public Use
  Company Number: None

PATIENT
  Age: 30 Year
  Sex: Female
  Weight: 100.7 kg

DRUGS (1)
  1. MIRENA [Suspect]
     Active Substance: LEVONORGESTREL

REACTIONS (5)
  - Sensory disturbance [None]
  - Feeling abnormal [None]
  - Confusional state [None]
  - Nerve compression [None]
  - Movement disorder [None]

NARRATIVE: CASE EVENT DATE: 20161114
